FAERS Safety Report 5677554-0 (Version None)
Quarter: 2008Q1

REPORT INFORMATION
  Report Type: 
  Country: None (occurrence: None)
  Receive Date: 20080324
  Receipt Date: 20080313
  Transmission Date: 20080703
  Serious: Yes (Hospitalization, Other)
  Sender: FDA-Public Use
  Company Number: CA-ROCHE-553358

PATIENT
  Age: 55 Year
  Sex: Male

DRUGS (6)
  1. PEGASYS [Suspect]
     Indication: HEPATITIS C
     Route: 058
  2. PEGASYS [Suspect]
     Dosage: SECOND THERAPY
     Route: 058
     Dates: start: 20070414
  3. COPEGUS [Suspect]
     Indication: HEPATITIS C
     Route: 048
  4. COPEGUS [Suspect]
     Dosage: SECOND THERAPY
     Route: 048
     Dates: start: 20070414
  5. EFFEXOR [Concomitant]
     Indication: DEPRESSION
     Route: 048
     Dates: start: 20070414
  6. EFFEXOR [Concomitant]
     Dosage: DOSAGE INCREASED
     Route: 048

REACTIONS (6)
  - ARTHRALGIA [None]
  - CARDIAC FAILURE CONGESTIVE [None]
  - DEPRESSION [None]
  - LEFT VENTRICULAR DYSFUNCTION [None]
  - MITRAL VALVE INCOMPETENCE [None]
  - PULMONARY HYPERTENSION [None]
